FAERS Safety Report 4456156-8 (Version None)
Quarter: 2004Q3

REPORT INFORMATION
  Report Type: 
  Country: None (occurrence: None)
  Receive Date: 20040920
  Receipt Date: 20040903
  Transmission Date: 20050211
  Serious: Yes (Hospitalization, Disabling)
  Sender: FDA-Public Use
  Company Number: 2004AP01943

PATIENT
  Age: 62 Year
  Sex: Female
  Weight: 62 kg

DRUGS (14)
  1. IRESSA [Suspect]
     Indication: NON-SMALL CELL LUNG CANCER
     Dosage: 250 MG DAILY PO
     Route: 048
     Dates: start: 20020611, end: 20021017
  2. IRESSA [Suspect]
     Indication: NON-SMALL CELL LUNG CANCER
     Dosage: 250 MG DAILY PO
     Route: 048
     Dates: start: 20021025, end: 20040220
  3. IRESSA [Suspect]
     Indication: NON-SMALL CELL LUNG CANCER
     Dosage: 250 MG DAILY PO
     Route: 048
     Dates: start: 20040227, end: 20040317
  4. IRESSA [Suspect]
     Indication: NON-SMALL CELL LUNG CANCER
     Dosage: 250 MG DAILY PO
     Route: 048
     Dates: start: 20040407, end: 20040416
  5. IRESSA [Suspect]
     Indication: NON-SMALL CELL LUNG CANCER
     Dosage: 250 MG DAILY PO
     Route: 048
     Dates: start: 20040420, end: 20040601
  6. IRESSA [Suspect]
     Indication: NON-SMALL CELL LUNG CANCER
     Dosage: 250 MG DAILY PO
     Route: 048
     Dates: start: 20040723
  7. MGO [Concomitant]
  8. CELEBREX [Concomitant]
  9. GEMCITABINE [Concomitant]
  10. CISPLATIN [Concomitant]
  11. PACLITAXEL [Concomitant]
  12. RADIOTHERAPY [Concomitant]
  13. PRIMPERAN INJ [Concomitant]
  14. STILNOX [Concomitant]

REACTIONS (14)
  - ARACHNOID CYST [None]
  - CEREBROSPINAL FLUID LEAKAGE [None]
  - CSF LYMPHOCYTE COUNT INCREASED [None]
  - CSF TEST ABNORMAL [None]
  - DEEP VEIN THROMBOSIS [None]
  - DERMAL CYST [None]
  - HEADACHE [None]
  - IMPAIRED HEALING [None]
  - INJECTION SITE HAEMORRHAGE [None]
  - METASTASES TO CENTRAL NERVOUS SYSTEM [None]
  - MYELITIS TRANSVERSE [None]
  - POST PROCEDURAL COMPLICATION [None]
  - PYREXIA [None]
  - URINARY TRACT INFECTION [None]
